FAERS Safety Report 7691769-1 (Version None)
Quarter: 2011Q3

REPORT INFORMATION
  Report Type: 
  Country: None (occurrence: None)
  Receive Date: 20110818
  Receipt Date: 20110809
  Transmission Date: 20111222
  Serious: Yes (Disabling, Other)
  Sender: FDA-Public Use
  Company Number: US-ASTRAZENECA-2011SE47919

PATIENT
  Age: 73 Year
  Sex: Female
  Weight: 113.4 kg

DRUGS (3)
  1. NEXIUM [Suspect]
     Indication: OESOPHAGEAL SPASM
     Route: 048
  2. LACTILOSE [Concomitant]
     Indication: DIARRHOEA
  3. NEXIUM [Suspect]
     Indication: GASTROOESOPHAGEAL REFLUX DISEASE
     Route: 048

REACTIONS (16)
  - DIARRHOEA [None]
  - ABDOMINAL DISCOMFORT [None]
  - RETINAL TEAR [None]
  - DRUG INEFFECTIVE [None]
  - POLYMYALGIA RHEUMATICA [None]
  - CATARACT OPERATION [None]
  - RETINOPEXY [None]
  - VISUAL IMPAIRMENT [None]
  - LIVER DISORDER [None]
  - NAUSEA [None]
  - INCORRECT DOSE ADMINISTERED [None]
  - ASTIGMATISM [None]
  - CATARACT [None]
  - BLINDNESS [None]
  - GLAUCOMA [None]
  - HEPATITIS C [None]
